FAERS Safety Report 13305512 (Version 1)
Quarter: 2017Q1

REPORT INFORMATION
  Report Type: Spontaneous
  Country: GB (occurrence: GB)
  Receive Date: 20170308
  Receipt Date: 20170308
  Transmission Date: 20170428
  Serious: Yes (Hospitalization)
  Sender: FDA-Public Use
  Company Number: GB-AUROBINDO-AUR-APL-2017-30392

PATIENT
  Age: 87 Year
  Sex: Male

DRUGS (7)
  1. NICORANDIL [Suspect]
     Active Substance: NICORANDIL
     Indication: CHEST PAIN
     Dosage: 30 MG, TWO TIMES A DAY
     Route: 048
     Dates: start: 20050131, end: 20170112
  2. AMLODIPINE [Concomitant]
     Active Substance: AMLODIPINE BESYLATE
     Indication: PRODUCT USED FOR UNKNOWN INDICATION
     Route: 065
  3. FINASTERIDE. [Concomitant]
     Active Substance: FINASTERIDE
     Indication: PRODUCT USED FOR UNKNOWN INDICATION
     Route: 065
  4. SIMVASTATIN. [Concomitant]
     Active Substance: SIMVASTATIN
     Indication: PRODUCT USED FOR UNKNOWN INDICATION
     Route: 065
  5. MONOMIL XL [Suspect]
     Active Substance: ISOSORBIDE MONONITRATE
     Indication: CHEST PAIN
     Dosage: 90 MG, ONCE A DAY
     Route: 048
     Dates: start: 20050921, end: 20170112
  6. RAMIPRIL 2.5MG [Suspect]
     Active Substance: RAMIPRIL
     Indication: ESSENTIAL HYPERTENSION
     Dosage: 2.5 MG, TWO TIMES A DAY
     Route: 048
     Dates: start: 20100323, end: 20170112
  7. ATENOLOL. [Suspect]
     Active Substance: ATENOLOL
     Indication: CHEST PAIN
     Dosage: 25 MG, ONCE A DAY
     Route: 048
     Dates: start: 20111105, end: 20170112

REACTIONS (3)
  - Dizziness [Recovered/Resolved]
  - Syncope [Recovered/Resolved]
  - Confusional state [Recovered/Resolved]

NARRATIVE: CASE EVENT DATE: 20170112
